FAERS Safety Report 5935441-4 (Version None)
Quarter: 2008Q4

REPORT INFORMATION
  Report Type: 
  Country: None (occurrence: None)
  Receive Date: 20081030
  Receipt Date: 20081024
  Transmission Date: 20090506
  Serious: Yes (Hospitalization)
  Sender: FDA-Public Use
  Company Number: JP-ABBOTT-08P-087-0479682-00

PATIENT
  Sex: Male
  Weight: 18 kg

DRUGS (9)
  1. KLARICID DRY SYRUP 10% [Suspect]
     Indication: COUGH
     Route: 048
     Dates: start: 20080922, end: 20080925
  2. KLARICID DRY SYRUP 10% [Suspect]
     Indication: RHINORRHOEA
  3. PRANLUKAST [Concomitant]
     Indication: NASOPHARYNGITIS
     Route: 048
     Dates: start: 20080922, end: 20080925
  4. MEQUITAZINE [Concomitant]
     Indication: NASOPHARYNGITIS
     Route: 048
     Dates: start: 20080922, end: 20080925
  5. LYSOZYME HYDROCHLORIDE [Concomitant]
     Indication: NASOPHARYNGITIS
     Route: 048
     Dates: start: 20080922, end: 20080925
  6. CEFDITOREN PIVOXIL [Concomitant]
     Indication: BRONCHITIS
     Route: 048
     Dates: start: 20080925, end: 20080926
  7. ANTIBIOTICS-RESISTANT LACTIC ACID BACTERIAE [Concomitant]
     Indication: GASTROENTERITIS
     Dates: start: 20080925, end: 20080926
  8. DOMPERIDONE MALEATE [Concomitant]
     Indication: GASTROENTERITIS
     Dosage: DRY SYRUP TID
     Dates: start: 20080925, end: 20080926
  9. BIOFERMIN [Concomitant]
     Indication: GASTROENTERITIS
     Route: 048
     Dates: start: 20080924, end: 20080925

REACTIONS (7)
  - BLOOD TEST ABNORMAL [None]
  - GASTROENTERITIS [None]
  - HEPATIC FUNCTION ABNORMAL [None]
  - JAUNDICE [None]
  - OCULAR ICTERUS [None]
  - TONSILLITIS [None]
  - VOMITING [None]
